FAERS Safety Report 8610732-7 (Version None)
Quarter: 2012Q3

REPORT INFORMATION
  Report Type: 
  Country: None (occurrence: None)
  Receive Date: 20120822
  Receipt Date: 20120815
  Transmission Date: 20120928
  Serious: Yes (Hospitalization, Other)
  Sender: FDA-Public Use
  Company Number: CN-BAYER-201011883GPV

PATIENT
  Age: 61 Year
  Sex: Male
  Weight: 51 kg

DRUGS (5)
  1. ASCORBIC ACID [Concomitant]
     Indication: VITAMIN SUPPLEMENTATION
     Dosage: DAILY DOSE 2 G
     Dates: start: 20091203, end: 20091204
  2. HERBAL PREPARATION [Concomitant]
     Indication: THERAPEUTIC PROCEDURE
     Dosage: DAILY DOSE 50 ML
     Dates: start: 20091203, end: 20091204
  3. NEXAVAR [Suspect]
     Indication: HEPATIC NEOPLASM MALIGNANT
     Dosage: 400 MG, QD
     Route: 048
     Dates: start: 20100125, end: 20120801
  4. VITAMIN B COMPLEX CAP [Concomitant]
     Indication: SUPPLEMENTATION THERAPY
     Dosage: DAILY DOSE 200 MG
     Dates: start: 20091203, end: 20091204
  5. ERLOTINIB HYDROCHLORIDE [Suspect]
     Indication: HEPATIC NEOPLASM MALIGNANT
     Dosage: 50 MG, QD
     Route: 048
     Dates: start: 20100928, end: 20120725

REACTIONS (2)
  - FATIGUE [None]
  - HYPOKALAEMIA [None]
